FAERS Safety Report 6098248-6 (Version None)
Quarter: 2009Q1

REPORT INFORMATION
  Report Type: 
  Country: None (occurrence: None)
  Receive Date: 20090227
  Receipt Date: 20090220
  Transmission Date: 20090719
  Serious: Yes (Other)
  Sender: FDA-Public Use
  Company Number: FR-AMGEN-US285367

PATIENT
  Sex: Female

DRUGS (2)
  1. ENBREL [Suspect]
     Indication: RHEUMATOID ARTHRITIS
     Dosage: UNKNOWN
     Route: 058
     Dates: start: 20051101, end: 20070219
  2. METHOTREXATE [Suspect]
     Indication: RHEUMATOID ARTHRITIS
     Dosage: UNKNOWN
     Route: 048
     Dates: start: 20001201

REACTIONS (7)
  - ABDOMINAL PAIN [None]
  - BLOOD CHROMOGRANIN A INCREASED [None]
  - CARCINOID TUMOUR OF THE SMALL BOWEL [None]
  - CONDITION AGGRAVATED [None]
  - RADIOISOTOPE SCAN ABNORMAL [None]
  - RHEUMATOID ARTHRITIS [None]
  - WEIGHT DECREASED [None]
